APPROVED DRUG PRODUCT: PROPOXYPHENE NAPSYLATE AND ACETAMINOPHEN
Active Ingredient: ACETAMINOPHEN; PROPOXYPHENE NAPSYLATE
Strength: 325MG;50MG
Dosage Form/Route: TABLET;ORAL
Application: A077677 | Product #001
Applicant: WOCKHARDT LTD
Approved: Mar 16, 2007 | RLD: No | RS: No | Type: DISCN